FAERS Safety Report 4736928-2 (Version None)
Quarter: 2005Q3

REPORT INFORMATION
  Report Type: 
  Country: None (occurrence: None)
  Receive Date: 20050808
  Receipt Date: 20050726
  Transmission Date: 20060218
  Serious: Yes (Hospitalization)
  Sender: FDA-Public Use
  Company Number: 200516069US

PATIENT
  Sex: Male
  Weight: 127 kg

DRUGS (13)
  1. LANTUS [Suspect]
     Indication: DIABETES MELLITUS
     Dosage: DOSE: UNK
  2. HUMULIN R [Concomitant]
     Dosage: DOSE: SLIDING SCALE
  3. REGLAN [Concomitant]
  4. LISINOPRIL [Concomitant]
     Route: 048
  5. COUMADIN [Concomitant]
     Route: 048
  6. TOPROL-XL [Concomitant]
     Route: 048
  7. DOXAZOSIN [Concomitant]
     Dosage: DOSE: 1 DAILY
  8. CRESTOR [Concomitant]
     Route: 048
  9. VITAMINS [Concomitant]
  10. FIBER [Concomitant]
  11. NEXIUM [Concomitant]
     Dosage: DOSE: UNKNOWN
     Route: 048
  12. VITAMIN B COMPLEX CAP [Concomitant]
  13. IMODIUM A-D [Concomitant]

REACTIONS (2)
  - BLOOD GLUCOSE FLUCTUATION [None]
  - CORONARY ARTERY SURGERY [None]
